FAERS Safety Report 6817576-7 (Version None)
Quarter: 2010Q3

REPORT INFORMATION
  Report Type: 
  Country: None (occurrence: None)
  Receive Date: 20100706
  Receipt Date: 20100630
  Transmission Date: 20110219
  Serious: Yes (Life-Threatening, Hospitalization)
  Sender: FDA-Public Use
  Company Number: PHHO2010DE05647

PATIENT
  Sex: Male
  Weight: 67 kg

DRUGS (2)
  1. NEORAL [Suspect]
     Indication: RENAL TRANSPLANT
     Dosage: 150 MG, BID
     Route: 048
     Dates: start: 20100411
  2. CERTICAN [Suspect]
     Indication: RENAL TRANSPLANT
     Dosage: 0.5 MG, BID
     Route: 048
     Dates: start: 20100411

REACTIONS (9)
  - BLOOD CREATININE INCREASED [None]
  - IMPAIRED HEALING [None]
  - INCISIONAL HERNIA [None]
  - PERINEPHRIC ABSCESS [None]
  - RENAL ARTERY STENOSIS [None]
  - RENAL FUNCTION TEST ABNORMAL [None]
  - SEROMA [None]
  - SURGERY [None]
  - WOUND INFECTION [None]
